FAERS Safety Report 13727671 (Version 4)
Quarter: 2018Q1

REPORT INFORMATION
  Report Type: Spontaneous
  Country: US (occurrence: US)
  Receive Date: 20170707
  Receipt Date: 20180207
  Transmission Date: 20180508
  Serious: No
  Sender: FDA-Public Use
  Company Number: US-PFIZER INC-2017292458

PATIENT
  Age: 75 Year
  Sex: Female

DRUGS (3)
  1. IBRANCE [Suspect]
     Active Substance: PALBOCICLIB
     Indication: BREAST CANCER FEMALE
     Dosage: UNK, CYCLIC ( 2 WEEKS ON AND 2 WEEKS OFF)
     Dates: start: 2017
  2. IBRANCE [Suspect]
     Active Substance: PALBOCICLIB
     Dosage: 75MG, CYCLIC, (ONE CAPSULE BY MOUTH ONCE A DAY FOR 14 DAYS ON AND OFF FOR 14 DAYS)
     Route: 048
     Dates: start: 2017
  3. OXYCODONE [Concomitant]
     Active Substance: OXYCODONE
     Dosage: UNK UNK, EVERY 4 HRS
     Dates: start: 201701

REACTIONS (7)
  - Eye disorder [Unknown]
  - Liver disorder [Unknown]
  - Feeding disorder [Recovering/Resolving]
  - Procedural pain [Not Recovered/Not Resolved]
  - Pain [Recovering/Resolving]
  - Speech disorder [Recovering/Resolving]
  - Weight decreased [Recovering/Resolving]

NARRATIVE: CASE EVENT DATE: 201706
